FAERS Safety Report 5093296-7 (Version None)
Quarter: 2006Q3

REPORT INFORMATION
  Report Type: 
  Country: None (occurrence: None)
  Receive Date: 20060828
  Receipt Date: 20060822
  Transmission Date: 20061208
  Serious: Yes (Hospitalization)
  Sender: FDA-Public Use
  Company Number: NARC20060003

PATIENT
  Sex: Female

DRUGS (1)
  1. NARCANTI (NALOXONE HCL) 0.4 MG/ML     BMS [Suspect]
     Indication: REVERSAL OF OPIATE ACTIVITY
     Dosage: 0.4 MG ONCE IM
     Route: 030
     Dates: start: 20040915, end: 20040915

REACTIONS (5)
  - ANXIETY [None]
  - BLOOD CALCIUM DECREASED [None]
  - MUSCLE TWITCHING [None]
  - NEONATAL DISORDER [None]
  - SCREAMING [None]
